FAERS Safety Report 24639401 (Version 1)
Quarter: 2024Q4

REPORT INFORMATION
  Report Type: Report from Study
  Country: US (occurrence: US)
  Receive Date: 20241119
  Receipt Date: 20241119
  Transmission Date: 20250114
  Serious: Yes (Other)
  Sender: ABBVIE
  Company Number: US-ABBVIE-6007224

PATIENT
  Age: 55 Year
  Sex: Male

DRUGS (1)
  1. RINVOQ [Suspect]
     Active Substance: UPADACITINIB
     Indication: Product used for unknown indication
     Route: 048
     Dates: start: 20240815

REACTIONS (4)
  - Knee arthroplasty [Recovered/Resolved]
  - Weight decreased [Recovered/Resolved]
  - Medical device implantation [Recovered/Resolved]
  - Gastric infection [Recovering/Resolving]

NARRATIVE: CASE EVENT DATE: 20240101
